FAERS Safety Report 18197561 (Version 1)
Quarter: 2020Q3

REPORT INFORMATION
  Report Type: Spontaneous
  Country: US (occurrence: US)
  Receive Date: 20200826
  Receipt Date: 20200826
  Transmission Date: 20201103
  Serious: Yes (Disabling, Other)
  Sender: FDA-Public Use
  Company Number: None

PATIENT
  Age: 29 Year
  Sex: Male
  Weight: 69.75 kg

DRUGS (8)
  1. FLUOXETINE 40MG CAPSULES [Suspect]
     Active Substance: FLUOXETINE HYDROCHLORIDE
     Indication: ANXIETY
     Dosage: ?          QUANTITY:1 CAPSULE(S);?
     Route: 048
     Dates: start: 20160101, end: 20200826
  2. D3 5000 UNITS [Concomitant]
  3. MYDAYIS [Concomitant]
     Active Substance: AMPHETAMINE ASPARTATE\AMPHETAMINE SULFATE\DEXTROAMPHETAMINE SACCHARATE\DEXTROAMPHETAMINE SULFATE
  4. FISH OIL [Concomitant]
     Active Substance: FISH OIL
  5. FAMOTIIDINE [Concomitant]
  6. FLUOXETINE 40MG CAPSULES [Suspect]
     Active Substance: FLUOXETINE HYDROCHLORIDE
     Indication: PERSISTENT DEPRESSIVE DISORDER
     Dosage: ?          QUANTITY:1 CAPSULE(S);?
     Route: 048
     Dates: start: 20160101, end: 20200826
  7. TUMS [Concomitant]
     Active Substance: CALCIUM CARBONATE
  8. MULTIVITAMIN [Concomitant]
     Active Substance: VITAMINS

REACTIONS (6)
  - Chest pain [None]
  - Throat tightness [None]
  - Oropharyngeal pain [None]
  - Pleuritic pain [None]
  - Chest discomfort [None]
  - Drug ineffective [None]

NARRATIVE: CASE EVENT DATE: 20200826
